FAERS Safety Report 19843914 (Version 2)
Quarter: 2021Q4

REPORT INFORMATION
  Report Type: Spontaneous
  Country: ES (occurrence: ES)
  Receive Date: 20210917
  Receipt Date: 20211004
  Transmission Date: 20220304
  Serious: Yes (Other)
  Sender: FDA-Public Use
  Company Number: ES-ADVANZ PHARMA-202109006285

PATIENT
  Sex: Male

DRUGS (5)
  1. SALAGEN [Suspect]
     Active Substance: PILOCARPINE HYDROCHLORIDE
     Indication: Aptyalism
     Dosage: 3 DOSAGE FORM, TID, Q8HR (1 IN THE MORNING, 1 AT NOON AND 1 AT NIGHT)
     Route: 065
  2. SALAGEN [Suspect]
     Active Substance: PILOCARPINE HYDROCHLORIDE
     Dosage: 1 DOSAGE FORM, QD, (1 DOSE PER DAY AT NIGHT)
     Route: 065
  3. INSULIN NOS [Concomitant]
     Active Substance: INSULIN NOS
     Dosage: UNK
  4. ACETAMINOPHEN [Concomitant]
     Active Substance: ACETAMINOPHEN
     Dosage: UNK
  5. GLYCERIN [Concomitant]
     Active Substance: GLYCERIN
     Dosage: UNK

REACTIONS (11)
  - Arrhythmia [Unknown]
  - Chest discomfort [Unknown]
  - Oral discomfort [Unknown]
  - Weight decreased [Unknown]
  - Ill-defined disorder [Unknown]
  - Hypotension [Unknown]
  - Tremor [Unknown]
  - Heart rate decreased [Unknown]
  - Drug ineffective for unapproved indication [Unknown]
  - Product use in unapproved indication [Unknown]
  - Product prescribing error [Unknown]
